FAERS Safety Report 6087419-0 (Version None)
Quarter: 2009Q1

REPORT INFORMATION
  Report Type: 
  Country: None (occurrence: None)
  Receive Date: 20090219
  Receipt Date: 20080601
  Transmission Date: 20090719
  Serious: Yes (Other)
  Sender: FDA-Public Use
  Company Number: WWISSUE-200

PATIENT
  Age: 90 Year
  Sex: Male

DRUGS (3)
  1. PREDNISONE [Suspect]
     Indication: PEMPHIGOID
     Dosage: 20MG/DAILY/ORAL
     Route: 048
     Dates: start: 20040101, end: 20080101
  2. ALTRACE [Concomitant]
  3. ARICEP [Concomitant]

REACTIONS (6)
  - CATARACT [None]
  - DIABETES MELLITUS [None]
  - FUNGAL INFECTION [None]
  - GLAUCOMA [None]
  - KAPOSI'S SARCOMA [None]
  - OSTEOPOROSIS [None]
